FAERS Safety Report 6732818-4 (Version None)
Quarter: 2010Q2

REPORT INFORMATION
  Report Type: 
  Country: None (occurrence: None)
  Receive Date: 20100519
  Receipt Date: 20100514
  Transmission Date: 20101027
  Serious: Yes (Hospitalization, Other)
  Sender: FDA-Public Use
  Company Number: US-RB-009310-10

PATIENT

DRUGS (3)
  1. SUBOXONE [Suspect]
     Route: 060
     Dates: end: 20100401
  2. MARIJUANA [Suspect]
     Indication: DEPENDENCE
  3. TOBACCO [Suspect]
     Indication: DEPENDENCE

REACTIONS (3)
  - DRUG EXPOSURE DURING PREGNANCY [None]
  - PREMATURE BABY [None]
  - SMALL FOR DATES BABY [None]
